FAERS Safety Report 12625727 (Version 3)
Quarter: 2016Q4

REPORT INFORMATION
  Report Type: Spontaneous
  Country: PT (occurrence: PT)
  Receive Date: 20160805
  Receipt Date: 20161026
  Transmission Date: 20170207
  Serious: Yes (Disabling, Other)
  Sender: FDA-Public Use
  Company Number: PT-GLAXOSMITHKLINE-PT2016111891

PATIENT
  Age: 5 Year
  Sex: Male
  Weight: 19 kg

DRUGS (4)
  1. FLIXOTAIDE [Suspect]
     Active Substance: FLUTICASONE PROPIONATE
     Dosage: INCREASE DOSE OF 125 MG / DAY TO 250 UG B.I.D. FROM  NOV/2015 AND REDUCES TO 125 UG PER DAY.
     Route: 055
     Dates: start: 201511
  2. FLIXOTAIDE [Suspect]
     Active Substance: FLUTICASONE PROPIONATE
     Indication: ASTHMA
     Dosage: INCREASE DOSE OF 125 MG / DAY TO 250 UG B.I.D. FROM  NOV/2015 AND REDUCES TO 125 UG PER DAY.
     Route: 055
     Dates: start: 2010
  3. FLIXOTAIDE [Suspect]
     Active Substance: FLUTICASONE PROPIONATE
     Dosage: INCREASE DOSE OF 125 MG / DAY TO 250 UG B.I.D. FROM  NOV/2015 AND REDUCES TO 125 UG PER DAY.
     Route: 055
     Dates: end: 201608
  4. DESLORATADINA [Concomitant]
     Active Substance: DESLORATADINE
     Indication: ASTHMA
     Dosage: 1 DF, UNK, AS NECESSARY
     Route: 048
     Dates: start: 2013

REACTIONS (3)
  - Agitation [Recovering/Resolving]
  - Aggression [Recovering/Resolving]
  - Abnormal behaviour [Recovering/Resolving]

NARRATIVE: CASE EVENT DATE: 201511
